FAERS Safety Report 23475237 (Version 1)
Quarter: 2024Q1

REPORT INFORMATION
  Report Type: Report from Study
  Country: US (occurrence: US)
  Receive Date: 20240204
  Receipt Date: 20240204
  Transmission Date: 20240410
  Serious: No
  Sender: FDA-Public Use
  Company Number: US-EXELIXIS-CABO-22058601

PATIENT
  Age: 72 Year
  Sex: Male

DRUGS (16)
  1. CABOMETYX [Suspect]
     Active Substance: CABOZANTINIB S-MALATE
     Indication: Soft tissue sarcoma
     Dosage: 60 MG, QD
     Route: 048
  2. CABOMETYX [Suspect]
     Active Substance: CABOZANTINIB S-MALATE
     Indication: Malignant connective tissue neoplasm
     Dosage: 40 MG, QD
     Route: 048
  3. CABOMETYX [Suspect]
     Active Substance: CABOZANTINIB S-MALATE
     Indication: Gastric cancer
     Dosage: 60 MG, QD
  4. VITAMIN C [Concomitant]
     Active Substance: ASCORBIC ACID
  5. GLUCOSAMINE [Concomitant]
     Active Substance: GLUCOSAMINE
  6. NIACIN [Concomitant]
     Active Substance: NIACIN
  7. VITAMIN D3 [Concomitant]
     Active Substance: CHOLECALCIFEROL
  8. VITAMINS [Concomitant]
     Active Substance: VITAMINS
  9. AMLODIPINE [Concomitant]
     Active Substance: AMLODIPINE BESYLATE
  10. HYDROCHLOROTHIAZIDE [Concomitant]
     Active Substance: HYDROCHLOROTHIAZIDE
  11. METOPROLOL [Concomitant]
     Active Substance: METOPROLOL
  12. DIETARY SUPPLEMENT\HERBALS\MILK THISTLE [Concomitant]
     Active Substance: MILK THISTLE
  13. SELENIUM [Concomitant]
     Active Substance: SELENIUM
  14. SHARK LIVER OIL [Concomitant]
     Active Substance: SHARK LIVER OIL
  15. ASPIRIN [Concomitant]
     Active Substance: ASPIRIN
  16. MELATONIN [Concomitant]
     Active Substance: MELATONIN

REACTIONS (3)
  - Joint swelling [Unknown]
  - Chest pain [Unknown]
  - Off label use [Unknown]

NARRATIVE: CASE EVENT DATE: 20230126
